FAERS Safety Report 8026682-3 (Version None)
Quarter: 2012Q1

REPORT INFORMATION
  Report Type: 
  Country: None (occurrence: None)
  Receive Date: 20120106
  Receipt Date: 20111230
  Transmission Date: 20120608
  Serious: No
  Sender: FDA-Public Use
  Company Number: US-BIOGENIDEC-2012BI000095

PATIENT
  Age: 53 Year
  Sex: Male

DRUGS (5)
  1. CLARITIN [Concomitant]
     Indication: HYPERAESTHESIA
  2. CORTISONE CREAM [Concomitant]
     Indication: MECHANICAL URTICARIA
  3. CORTISONE CREAM [Concomitant]
     Indication: HYPERAESTHESIA
  4. CLARITIN [Concomitant]
  5. TYSABRI [Suspect]
     Indication: MULTIPLE SCLEROSIS
     Route: 042
     Dates: start: 20071001

REACTIONS (1)
  - PRURITUS [None]
